FAERS Safety Report 13101255 (Version 2)
Quarter: 2017Q1

REPORT INFORMATION
  Report Type: Spontaneous
  Country: US (occurrence: US)
  Receive Date: 20170110
  Receipt Date: 20170213
  Transmission Date: 20170428
  Serious: Yes (Other)
  Sender: FDA-Public Use
  Company Number: US-ASTRAZENECA-2017SE01753

PATIENT
  Sex: Female

DRUGS (1)
  1. NEXIUM [Suspect]
     Active Substance: ESOMEPRAZOLE MAGNESIUM
     Dosage: UNK (TOOK NEXIUM FOR 12 YEARS)
     Route: 048

REACTIONS (3)
  - Oesophageal carcinoma [Unknown]
  - Dyspepsia [Unknown]
  - Intentional product use issue [Unknown]
